FAERS Safety Report 21712313 (Version 2)
Quarter: 2023Q1

REPORT INFORMATION
  Report Type: Spontaneous
  Country: JP (occurrence: JP)
  Receive Date: 20221212
  Receipt Date: 20230214
  Transmission Date: 20230418
  Serious: Yes (Other)
  Sender: FDA-Public Use
  Company Number: JP-KYOWAKIRIN-2022AKK019043

PATIENT

DRUGS (4)
  1. POTELIGEO [Suspect]
     Active Substance: MOGAMULIZUMAB-KPKC
     Indication: Adult T-cell lymphoma/leukaemia
     Dosage: (STARTED AT A DOSE OF 30 MG PER DAY AND MAINTAINED AT 5 MG PER DAY) FOR 5 YEARS.
     Route: 041
  2. POTELIGEO [Suspect]
     Active Substance: MOGAMULIZUMAB-KPKC
     Dosage: (STARTED AT A DOSE OF 30 MG PER DAY AND MAINTAINED AT 5 MG PER DAY) FOR 5 YEARS.
     Route: 041
  3. UNSPECIFIED INGREDIENT [Concomitant]
     Active Substance: UNSPECIFIED INGREDIENT
     Indication: Adult T-cell lymphoma/leukaemia
     Dosage: (STARTED AT A DOSE OF 30 MG PER DAY AND MAINTAINED AT 5 MG PER DAY) FOR 5 YEARS.
     Route: 065
  4. UNSPECIFIED INGREDIENT [Concomitant]
     Active Substance: UNSPECIFIED INGREDIENT
     Dosage: (STARTED AT A DOSE OF 30 MG PER DAY AND MAINTAINED AT 5 MG PER DAY) FOR 5 YEARS.
     Route: 065

REACTIONS (1)
  - Squamous cell carcinoma of the tongue [Unknown]
